FAERS Safety Report 9198441 (Version 1)
Quarter: 2013Q1

REPORT INFORMATION
  Report Type: Spontaneous
  Country: US (occurrence: None)
  Receive Date: 20130327
  Receipt Date: 20130327
  Transmission Date: 20140127
  Serious: Yes (Hospitalization, Disabling, Other)
  Sender: FDA-Public Use
  Company Number: None

PATIENT
  Age: 33 Year
  Sex: Female
  Weight: 63.5 kg

DRUGS (6)
  1. DIAZEPAM 10MG TEVA [Suspect]
     Indication: ANXIETY
     Dosage: 10MG  1X PER NIGHT PO
     Route: 048
     Dates: start: 20110116, end: 20130326
  2. DIAZEPAM 10MG TEVA [Suspect]
     Indication: PANIC ATTACK
     Dosage: 10MG  1X PER NIGHT PO
     Route: 048
     Dates: start: 20110116, end: 20130326
  3. DIAZEPAM 10MG TEVA [Suspect]
     Indication: INSOMNIA
     Dosage: 10MG  1X PER NIGHT PO
     Route: 048
     Dates: start: 20110116, end: 20130326
  4. KLONOPIN 2MG ROCHE [Suspect]
     Indication: ANXIETY
     Dosage: 2MG 1X PER NIGHT PO
     Route: 048
     Dates: start: 20040101, end: 20110115
  5. KLONOPIN 2MG ROCHE [Suspect]
     Indication: PANIC ATTACK
     Dosage: 2MG 1X PER NIGHT PO
     Route: 048
     Dates: start: 20040101, end: 20110115
  6. KLONOPIN 2MG ROCHE [Suspect]
     Indication: INSOMNIA
     Dosage: 2MG 1X PER NIGHT PO
     Route: 048
     Dates: start: 20040101, end: 20110115

REACTIONS (7)
  - Tachycardia [None]
  - Anxiety [None]
  - Drug dependence [None]
  - Drug withdrawal syndrome [None]
  - Impaired work ability [None]
  - Impaired driving ability [None]
  - Alopecia [None]
